FAERS Safety Report 4784721-7 (Version None)
Quarter: 2005Q3

REPORT INFORMATION
  Report Type: 
  Country: None (occurrence: None)
  Receive Date: 20050929
  Receipt Date: 20050929
  Transmission Date: 20060218
  Serious: Yes (Other)
  Sender: FDA-Public Use
  Company Number: None

PATIENT
  Age: 83 Year
  Sex: Male
  Weight: 70.1 kg

DRUGS (8)
  1. SEPTRA [Suspect]
     Indication: UPPER RESPIRATORY TRACT INFECTION
     Dosage: 2 TABS, 1 TABS B, ORAL
     Route: 048
  2. CARBIDOPA 50/LEVODOPA [Concomitant]
  3. CARBIDOPA 10/LEVODOPA [Concomitant]
  4. PROCHLORPERAZINE MALEATE [Concomitant]
  5. RANITIDINE HCL [Concomitant]
  6. TAMSULOSIN HCL [Concomitant]
  7. ACETAMINOPHEN [Concomitant]
  8. BACITRACIN 500/POLYMX [Concomitant]

REACTIONS (3)
  - GINGIVAL SWELLING [None]
  - OEDEMA MOUTH [None]
  - SWOLLEN TONGUE [None]
